FAERS Safety Report 14123551 (Version 2)
Quarter: 2018Q2

REPORT INFORMATION
  Report Type: Spontaneous
  Country: FR (occurrence: FR)
  Receive Date: 20171025
  Receipt Date: 20180417
  Transmission Date: 20180711
  Serious: Yes (Hospitalization)
  Sender: FDA-Public Use
  Company Number: FR-JNJFOC-20171018538

PATIENT
  Age: 6 Year
  Sex: Male
  Weight: 20 kg

DRUGS (3)
  1. RISPERDAL [Suspect]
     Active Substance: RISPERIDONE
     Indication: PRODUCT USED FOR UNKNOWN INDICATION
     Route: 048
  2. RISPERDAL [Suspect]
     Active Substance: RISPERIDONE
     Indication: PRODUCT USED FOR UNKNOWN INDICATION
     Route: 048
     Dates: start: 20170815, end: 20170815
  3. RITALINE [Concomitant]
     Active Substance: METHYLPHENIDATE HYDROCHLORIDE
     Route: 065

REACTIONS (4)
  - Tachycardia [Recovered/Resolved]
  - Overdose [Unknown]
  - Somnolence [Recovered/Resolved]
  - Incorrect dose administered [Unknown]

NARRATIVE: CASE EVENT DATE: 20170815
